FAERS Safety Report 10086796 (Version 1)
Quarter: 2014Q2

REPORT INFORMATION
  Report Type: Spontaneous
  Country: US (occurrence: US)
  Receive Date: 20140418
  Receipt Date: 20140418
  Transmission Date: 20141212
  Serious: Yes (Death, Hospitalization)
  Sender: FDA-Public Use
  Company Number: US-GLAXOSMITHKLINE-A1069272A

PATIENT
  Age: 77 Year
  Sex: Male

DRUGS (4)
  1. ADVAIR [Suspect]
     Indication: CHRONIC OBSTRUCTIVE PULMONARY DISEASE
     Dosage: 1PUFF TWICE PER DAY
     Route: 055
     Dates: start: 20130506
  2. ANTIDEPRESSANT [Concomitant]
  3. BLOOD PRESSURE MEDICATION [Concomitant]
  4. OTHER MEDICATIONS [Concomitant]

REACTIONS (2)
  - Death [Fatal]
  - Pneumonia [Unknown]
